FAERS Safety Report 21446581 (Version 1)
Quarter: 2022Q4

REPORT INFORMATION
  Report Type: Spontaneous
  Country: US (occurrence: None)
  Receive Date: 20221011
  Receipt Date: 20221011
  Transmission Date: 20230112
  Serious: Yes (Hospitalization)
  Sender: FDA-Public Use
  Company Number: None

PATIENT
  Age: 26 Year
  Sex: Male
  Weight: 95.8 kg

DRUGS (4)
  1. DEXAMETHASONE [Suspect]
     Active Substance: DEXAMETHASONE
     Dates: end: 20220925
  2. MERCAPTOPURINE [Suspect]
     Active Substance: MERCAPTOPURINE
     Dates: end: 20221002
  3. METHOTREXATE [Suspect]
     Active Substance: METHOTREXATE
     Dates: end: 20220726
  4. VINCRISTINE SULFATE [Suspect]
     Active Substance: VINCRISTINE SULFATE
     Dates: end: 20220920

REACTIONS (8)
  - Dyspnoea exertional [None]
  - Asthenia [None]
  - Haemoglobin decreased [None]
  - Haematocrit decreased [None]
  - Platelet count decreased [None]
  - Haemolysis [None]
  - Thrombotic microangiopathy [None]
  - Disease recurrence [None]

NARRATIVE: CASE EVENT DATE: 20221003
